FAERS Safety Report 16185835 (Version 1)
Quarter: 2019Q2

REPORT INFORMATION
  Report Type: Spontaneous
  Country: IT (occurrence: IT)
  Receive Date: 20190411
  Receipt Date: 20190411
  Transmission Date: 20190711
  Serious: Yes (Other)
  Sender: FDA-Public Use
  Company Number: IT-BAUSCH-BL-2019-010492

PATIENT
  Age: 71 Year
  Sex: Male

DRUGS (8)
  1. TRIPTORELIN [Concomitant]
     Active Substance: TRIPTORELIN
     Indication: PROSTATE CANCER STAGE IV
     Dates: start: 201607
  2. PHENOBARBITAL. [Concomitant]
     Active Substance: PHENOBARBITAL
     Indication: EPILEPSY
  3. VINCRISTINE [Suspect]
     Active Substance: VINCRISTINE
     Indication: PROSTATE CANCER STAGE IV
     Dosage: EVERY 21 DAYS ; 6 CYCLICAL
     Route: 065
     Dates: start: 201606, end: 201610
  4. RITUXIMAB. [Suspect]
     Active Substance: RITUXIMAB
     Indication: PROSTATE CANCER STAGE IV
     Dosage: EVERY 21 DAYS ; 6 CYCLICAL
     Route: 042
     Dates: start: 201606, end: 201610
  5. BICALUTAMIDE. [Concomitant]
     Active Substance: BICALUTAMIDE
     Indication: PROSTATE CANCER STAGE IV
     Route: 065
     Dates: start: 201607, end: 201608
  6. PREDNISOLONE. [Suspect]
     Active Substance: PREDNISOLONE
     Indication: PROSTATE CANCER STAGE IV
     Dosage: EVERY 21 DAYS ; 6 CYCLICAL
     Route: 065
     Dates: start: 201606, end: 201610
  7. DOXORUBICIN [Suspect]
     Active Substance: DOXORUBICIN
     Indication: PROSTATE CANCER STAGE IV
     Dosage: EVERY 21 DAYS ; 6 CYCLICAL
     Route: 065
     Dates: start: 201606, end: 201610
  8. CYCLOPHOSPHAMIDE. [Suspect]
     Active Substance: CYCLOPHOSPHAMIDE
     Indication: PROSTATE CANCER STAGE IV
     Dosage: EVERY 21 DAYS ; 6 CYCLICAL
     Route: 065
     Dates: start: 201606, end: 201610

REACTIONS (2)
  - Neutropenia [Unknown]
  - Anaemia [Unknown]

NARRATIVE: CASE EVENT DATE: 2016
